FAERS Safety Report 6204904-9 (Version None)
Quarter: 2009Q2

REPORT INFORMATION
  Report Type: 
  Country: None (occurrence: None)
  Receive Date: 20090526
  Receipt Date: 20090224
  Transmission Date: 20091009
  Serious: Yes (Other)
  Sender: FDA-Public Use
  Company Number: 2009-00081FE

PATIENT
  Age: 12 Year
  Sex: Female

DRUGS (1)
  1. MINIRIN        (DESMOPRESSIN ACETATE) TABLET 1 [Suspect]
     Indication: ENURESIS
     Dosage: ORAL
     Route: 048
     Dates: start: 20071101, end: 20080201

REACTIONS (1)
  - WEIGHT INCREASED [None]
